FAERS Safety Report 5926930-7 (Version None)
Quarter: 2008Q4

REPORT INFORMATION
  Report Type: 
  Country: None (occurrence: None)
  Receive Date: 20081022
  Receipt Date: 20081022
  Transmission Date: 20090506
  Serious: Yes (Hospitalization)
  Sender: FDA-Public Use
  Company Number: GB-JNJFOC-20081004391

PATIENT
  Age: 67 Year
  Sex: Male

DRUGS (5)
  1. GALANTAMINE HYDROBROMIDE [Suspect]
     Indication: MEMORY IMPAIRMENT
     Route: 048
  2. DIAZEPAM [Concomitant]
     Indication: ANXIETY
  3. FOLIC ACID [Concomitant]
     Indication: FOLATE DEFICIENCY
  4. SIMVASTATIN [Concomitant]
     Indication: HYPERLIPIDAEMIA
  5. TRAZODONE HCL [Concomitant]
     Indication: DEPRESSION

REACTIONS (6)
  - AGGRESSION [None]
  - CONFUSIONAL STATE [None]
  - DELIRIUM [None]
  - DEPRESSED MOOD [None]
  - DISINHIBITION [None]
  - RESTLESSNESS [None]
